FAERS Safety Report 21105577 (Version 3)
Quarter: 2022Q3

REPORT INFORMATION
  Report Type: Spontaneous
  Country: US (occurrence: US)
  Receive Date: 20220720
  Receipt Date: 20220808
  Transmission Date: 20221027
  Serious: Yes (Hospitalization)
  Sender: FDA-Public Use
  Company Number: US-RIGEL PHARMACEUTICALS, INC.-2022FOS000521

PATIENT
  Sex: Female
  Weight: 78.458 kg

DRUGS (1)
  1. TAVALISSE [Suspect]
     Active Substance: FOSTAMATINIB
     Indication: Immune thrombocytopenia
     Dosage: 100 MG, BID
     Route: 048
     Dates: start: 20211026

REACTIONS (23)
  - Cardiac failure congestive [Unknown]
  - Respiratory disorder [Unknown]
  - Drainage [Unknown]
  - Vomiting [Unknown]
  - Serum ferritin increased [Unknown]
  - Red blood cell count decreased [Unknown]
  - Haemoglobin decreased [Unknown]
  - Contusion [Unknown]
  - Mean cell volume increased [Unknown]
  - Mean cell haemoglobin increased [Unknown]
  - Laboratory test abnormal [Unknown]
  - Platelet count decreased [Unknown]
  - Breast pain [Unknown]
  - Hepatomegaly [Unknown]
  - Splenomegaly [Unknown]
  - Dental caries [Unknown]
  - Tongue cyst [Unknown]
  - Unevaluable event [Unknown]
  - Asthenia [Unknown]
  - Diarrhoea [Unknown]
  - Nausea [Unknown]
  - Fatigue [Unknown]
  - Platelet count [Unknown]
